FAERS Safety Report 5335201-1 (Version None)
Quarter: 2007Q2

REPORT INFORMATION
  Report Type: 
  Country: None (occurrence: None)
  Receive Date: 20070308
  Receipt Date: 20070111
  Transmission Date: 20071010
  Serious: No
  Sender: FDA-Public Use
  Company Number: 2007-BP-00547BP

PATIENT
  Age: 83 Year
  Sex: Female

DRUGS (1)
  1. SPIRIVA [Suspect]
     Indication: CHRONIC OBSTRUCTIVE PULMONARY DISEASE
     Dosage: 18 MCG, (18 MCG, 1 IN 1 D), IH
     Route: 055
     Dates: start: 20061224, end: 20061225

REACTIONS (1)
  - DEAFNESS [None]
